FAERS Safety Report 25196932 (Version 3)
Quarter: 2025Q4

REPORT INFORMATION
  Report Type: Report from Study
  Country: JP (occurrence: JP)
  Receive Date: 20250415
  Receipt Date: 20251221
  Transmission Date: 20260117
  Serious: Yes (Death)
  Sender: ARGENX BVBA
  Company Number: JP-ARGENX-2025-ARGX-JP004732

PATIENT

DRUGS (2)
  1. EFGARTIGIMOD ALFA [Suspect]
     Active Substance: EFGARTIGIMOD ALFA
     Indication: Immune thrombocytopenia
     Dosage: 10 MG/KG
     Route: 042
     Dates: start: 20250402, end: 20250402
  2. SOLU-MEDROL [Concomitant]
     Active Substance: METHYLPREDNISOLONE SODIUM SUCCINATE
     Indication: Immune thrombocytopenia
     Dosage: 250 UNK, DAILY
     Route: 042

REACTIONS (2)
  - Gastrointestinal haemorrhage [Fatal]
  - Off label use [Unknown]

NARRATIVE: CASE EVENT DATE: 20250402
